FAERS Safety Report 5142818-6 (Version None)
Quarter: 2006Q4

REPORT INFORMATION
  Report Type: 
  Country: None (occurrence: None)
  Receive Date: 20061027
  Receipt Date: 20061010
  Transmission Date: 20070319
  Serious: Yes (Hospitalization)
  Sender: FDA-Public Use
  Company Number: US200609007047

PATIENT
  Age: 82 Year
  Sex: Female

DRUGS (2)
  1. FORTEO [Suspect]
     Indication: OSTEOPOROSIS
     Dates: start: 20050711, end: 20060801
  2. FORTEO [Concomitant]

REACTIONS (3)
  - ARTHRALGIA [None]
  - FALL [None]
  - WRIST FRACTURE [None]
